FAERS Safety Report 6299643-2 (Version None)
Quarter: 2009Q3

REPORT INFORMATION
  Report Type: 
  Country: None (occurrence: None)
  Receive Date: 20090806
  Receipt Date: 20090729
  Transmission Date: 20100115
  Serious: Yes (Life-Threatening)
  Sender: FDA-Public Use
  Company Number: JP-SANOFI-SYNTHELABO-A01200809832

PATIENT
  Sex: Male
  Weight: 55 kg

DRUGS (9)
  1. LANIRAPID [Concomitant]
     Indication: SUPRAVENTRICULAR TACHYCARDIA
     Route: 048
  2. DIOVAN [Concomitant]
     Indication: HYPERTENSION
     Route: 048
  3. NORVASC [Concomitant]
     Indication: HYPERTENSION
     Route: 048
  4. ADALAT CC [Concomitant]
     Indication: HYPERTENSION
     Route: 048
  5. OMEPRAL [Concomitant]
     Indication: GASTRITIS
     Route: 048
     Dates: start: 20080715, end: 20080728
  6. ASPIRIN [Concomitant]
     Indication: ANGINA PECTORIS
     Route: 048
     Dates: start: 20080715
  7. PLAVIX [Suspect]
     Indication: PERCUTANEOUS CORONARY INTERVENTION
     Route: 048
     Dates: start: 20080715, end: 20080728
  8. PLAVIX [Suspect]
     Indication: ANGINA PECTORIS
     Route: 048
     Dates: start: 20080715, end: 20080728
  9. FLUITRAN [Concomitant]
     Indication: HYPERTENSION
     Route: 048
     Dates: end: 20080913

REACTIONS (4)
  - LIVER DISORDER [None]
  - PANCYTOPENIA [None]
  - PYREXIA [None]
  - THROMBOCYTOPENIA [None]
